FAERS Safety Report 10433746 (Version 2)
Quarter: 2014Q3

REPORT INFORMATION
  Report Type: Report from Study
  Country: US (occurrence: US)
  Receive Date: 20140905
  Receipt Date: 20140905
  Transmission Date: 20150326
  Serious: Yes (Hospitalization)
  Sender: FDA-Public Use
  Company Number: US-GILEAD-2013-0090460

PATIENT
  Age: 43 Year
  Sex: Male
  Weight: 77.6 kg

DRUGS (2)
  1. IDELALISIB [Suspect]
     Active Substance: IDELALISIB
     Dosage: 150 MG, BID
     Route: 048
     Dates: start: 20131213
  2. IDELALISIB [Suspect]
     Active Substance: IDELALISIB
     Indication: HODGKIN^S DISEASE NODULAR SCLEROSIS
     Dosage: 300 MG, BID
     Route: 048
     Dates: start: 20130329, end: 20131018

REACTIONS (5)
  - Hypocalcaemia [Recovered/Resolved]
  - Hypomagnesaemia [Recovered/Resolved]
  - Platelet count decreased [Recovered/Resolved]
  - Hypokalaemia [Recovered/Resolved]
  - Colitis [Recovered/Resolved]

NARRATIVE: CASE EVENT DATE: 20131018
